FAERS Safety Report 25916989 (Version 1)
Quarter: 2025Q4

REPORT INFORMATION
  Report Type: Spontaneous
  Country: EU (occurrence: EU)
  Receive Date: 20251014
  Receipt Date: 20251014
  Transmission Date: 20260119
  Serious: Yes (Death)
  Sender: RK PHARMA
  Company Number: EU-RK PHARMA, INC-20251000140

PATIENT
  Age: 70 Year
  Sex: Male

DRUGS (1)
  1. METFORMIN HYDROCHLORIDE [Suspect]
     Active Substance: METFORMIN HYDROCHLORIDE
     Indication: Type 2 diabetes mellitus
     Dosage: UNK, UNKNOWN
     Route: 065

REACTIONS (1)
  - Toxicity to various agents [Fatal]
